FAERS Safety Report 4518929-2 (Version None)
Quarter: 2004Q4

REPORT INFORMATION
  Report Type: 
  Country: None (occurrence: None)
  Receive Date: 20041203
  Receipt Date: 20041203
  Transmission Date: 20050328
  Serious: Yes (Hospitalization)
  Sender: FDA-Public Use
  Company Number: None

PATIENT
  Age: 38 Year
  Sex: Female
  Weight: 80.2867 kg

DRUGS (14)
  1. HERCEPTIN [Suspect]
     Indication: BREAST CANCER
     Dosage: 4 MG/ KG IV
     Route: 042
     Dates: start: 20041015, end: 20041119
  2. PACLITAXEL [Suspect]
     Indication: BREAST CANCER
     Dosage: 80 MG/M2 IV
     Route: 042
     Dates: start: 20041015, end: 20041119
  3. CARBOPLATIN [Suspect]
     Indication: BREAST CANCER
     Dosage: AUC 6 IV
     Route: 042
     Dates: start: 20041015
  4. CARBOPLATIN [Suspect]
     Indication: BREAST CANCER
     Dosage: AUC 6 IV
     Route: 042
     Dates: start: 20041112
  5. COLACE [Concomitant]
  6. ZOFRAN [Concomitant]
  7. OXYCODONE HCL [Concomitant]
  8. PERCOCET [Concomitant]
  9. ALPRAZOLAM [Concomitant]
  10. HEPARIN [Concomitant]
  11. COMBIVENT [Concomitant]
  12. ROBITUSSIN [Concomitant]
  13. PROTONIX [Concomitant]
  14. ZITHROMAX [Concomitant]

REACTIONS (5)
  - ASTHMA [None]
  - BRONCHITIS [None]
  - COUGH [None]
  - DYSPNOEA [None]
  - WHEEZING [None]
